FAERS Safety Report 24176252 (Version 1)
Quarter: 2024Q3

REPORT INFORMATION
  Report Type: Spontaneous
  Country: CN (occurrence: CN)
  Receive Date: 20240806
  Receipt Date: 20240806
  Transmission Date: 20241017
  Serious: Yes (Other)
  Sender: Haleon PLC
  Company Number: CN-HALEON-2190381

PATIENT
  Age: 19 Year
  Sex: Female
  Weight: 48 kg

DRUGS (1)
  1. IBUPROFEN [Suspect]
     Active Substance: IBUPROFEN
     Indication: Pain in extremity
     Route: 048
     Dates: start: 20240731, end: 20240731

REACTIONS (8)
  - Drug-induced liver injury [Unknown]
  - Pruritus [Unknown]
  - Erythema [Unknown]
  - Pain [Unknown]
  - Rash [Unknown]
  - Papule [Unknown]
  - Inappropriate schedule of product administration [Unknown]
  - Condition aggravated [Unknown]

NARRATIVE: CASE EVENT DATE: 20240731
